FAERS Safety Report 18125373 (Version 2)
Quarter: 2020Q3

REPORT INFORMATION
  Report Type: Spontaneous
  Country: US (occurrence: US)
  Receive Date: 20200807
  Receipt Date: 20200902
  Transmission Date: 20201103
  Serious: No
  Sender: FDA-Public Use
  Company Number: US-ALLERGAN-2029320US

PATIENT
  Sex: Female

DRUGS (2)
  1. CRINONE [Suspect]
     Active Substance: PROGESTERONE
     Indication: AMNIOCENTESIS ABNORMAL
     Dosage: UNK
  2. CRINONE [Suspect]
     Active Substance: PROGESTERONE
     Indication: SHORTENED CERVIX

REACTIONS (2)
  - Pregnancy [Unknown]
  - Off label use [Unknown]
